FAERS Safety Report 18648134 (Version 1)
Quarter: 2020Q4

REPORT INFORMATION
  Report Type: Spontaneous
  Country: US (occurrence: US)
  Receive Date: 20201221
  Receipt Date: 20201221
  Transmission Date: 20210114
  Serious: Yes (Hospitalization)
  Sender: FDA-Public Use
  Company Number: None

PATIENT
  Age: 53 Year
  Sex: Female

DRUGS (9)
  1. FLUCONAZOLE. [Concomitant]
     Active Substance: FLUCONAZOLE
  2. ACETAZOLAMID [Concomitant]
     Active Substance: ACETAZOLAMIDE
  3. LEVETIRACETA [Concomitant]
     Active Substance: LEVETIRACETAM
  4. DEXAMETHASON [Concomitant]
     Active Substance: DEXAMETHASONE
  5. CAPECITABINE. [Suspect]
     Active Substance: CAPECITABINE
     Indication: BREAST CANCER
     Route: 048
     Dates: start: 20190328
  6. MEMANTINE. [Concomitant]
     Active Substance: MEMANTINE
  7. ONDANSETRON [Concomitant]
     Active Substance: ONDANSETRON
  8. PANTOPRAZOLE [Concomitant]
     Active Substance: PANTOPRAZOLE
  9. PROCHLORPER [Concomitant]

REACTIONS (2)
  - Disease complication [None]
  - Dry skin [None]

NARRATIVE: CASE EVENT DATE: 20201113
